FAERS Safety Report 14357111 (Version 1)
Quarter: 2018Q1

REPORT INFORMATION
  Report Type: Spontaneous
  Country: US (occurrence: US)
  Receive Date: 20180105
  Receipt Date: 20180105
  Transmission Date: 20180509
  Serious: Yes (Hospitalization)
  Sender: FDA-Public Use
  Company Number: US-SHIRE-US201735304

PATIENT
  Sex: Male

DRUGS (1)
  1. FIRAZYR [Suspect]
     Active Substance: ICATIBANT ACETATE
     Indication: PRODUCT USED FOR UNKNOWN INDICATION
     Dosage: 1 SYRINGE, AS REQ^D
     Route: 065

REACTIONS (2)
  - Dehydration [Recovering/Resolving]
  - Electrolyte imbalance [Recovering/Resolving]
